FAERS Safety Report 15647521 (Version 2)
Quarter: 2019Q1

REPORT INFORMATION
  Report Type: Spontaneous
  Country: US (occurrence: US)
  Receive Date: 20181122
  Receipt Date: 20190122
  Transmission Date: 20190417
  Serious: Yes (Hospitalization, Other)
  Sender: FDA-Public Use
  Company Number: US-UNITED THERAPEUTICS-UNT-2018-019167

PATIENT
  Age: 61 Year
  Sex: Female

DRUGS (5)
  1. ORENITRAM [Suspect]
     Active Substance: TREPROSTINIL
     Indication: PULMONARY ARTERIAL HYPERTENSION
     Dosage: 0.125 MG, TID (1 TABLET OF 0.125 MG)
     Route: 048
     Dates: start: 20181026, end: 20181115
  2. ORENITRAM [Suspect]
     Active Substance: TREPROSTINIL
     Dosage: 0.5 MG, TID (2 TABLETS OF 0.25MG)
     Route: 048
     Dates: start: 20181026, end: 20181115
  3. ADCIRCA [Concomitant]
     Active Substance: TADALAFIL
     Indication: PRODUCT USED FOR UNKNOWN INDICATION
     Dosage: 40 MG, QD
     Route: 065
  4. ORENITRAM [Suspect]
     Active Substance: TREPROSTINIL
     Indication: PULMONARY ARTERIAL HYPERTENSION
     Dosage: 0.5 MG, TID (2 TABLETS OF 0.25 MG)
     Route: 048
     Dates: start: 20181026, end: 20181115
  5. ORENITRAM [Suspect]
     Active Substance: TREPROSTINIL
     Dosage: 0.125 MG, TID (1 TABLET OF 0.125MG)
     Route: 048
     Dates: start: 20181026, end: 20181115

REACTIONS (4)
  - Dyspnoea [Unknown]
  - Heart rate increased [Recovered/Resolved]
  - Asthenia [Unknown]
  - Hypersensitivity [Recovered/Resolved]

NARRATIVE: CASE EVENT DATE: 20181115
